FAERS Safety Report 13322313 (Version 1)
Quarter: 2017Q1

REPORT INFORMATION
  Report Type: Other
  Country: GB (occurrence: GB)
  Receive Date: 20170309
  Receipt Date: 20170309
  Transmission Date: 20170428
  Serious: Yes (Other)
  Sender: FDA-Public Use
  Company Number: GB-ASTELLAS-2017US008416

PATIENT
  Age: 24 Year
  Sex: Male

DRUGS (5)
  1. CLOBETASONE [Concomitant]
     Active Substance: CLOBETASONE
     Indication: DERMATITIS ATOPIC
     Dosage: UNK UNK, AS NEEDED (TREATMENT OF NECK )
     Route: 065
     Dates: start: 2014
  2. TACROLIMUS. [Suspect]
     Active Substance: TACROLIMUS
     Indication: DERMATITIS ATOPIC
     Dosage: 1 DF, ONCE DAILY (TO FACE)
     Route: 061
  3. SALBUTAMOL [Concomitant]
     Active Substance: ALBUTEROL
     Indication: PRODUCT USED FOR UNKNOWN INDICATION
     Dosage: UNK UNK, UNKNOWN FREQ.
     Route: 055
  4. BECLOMETASONE [Concomitant]
     Active Substance: BECLOMETHASONE DIPROPIONATE
     Indication: PRODUCT USED FOR UNKNOWN INDICATION
     Dosage: UNK UNK, UNKNOWN FREQ.
     Route: 055
     Dates: start: 2014
  5. MOMETASONE [Concomitant]
     Active Substance: MOMETASONE
     Indication: DERMATITIS ATOPIC
     Dosage: UNK UNK, AS NEEDED (FOR BODY FLARES UP)
     Route: 065

REACTIONS (2)
  - Herpes zoster [Recovering/Resolving]
  - Scab [Recovering/Resolving]

NARRATIVE: CASE EVENT DATE: 20170130
